FAERS Safety Report 6826867-5 (Version None)
Quarter: 2010Q3

REPORT INFORMATION
  Report Type: 
  Country: None (occurrence: None)
  Receive Date: 20100709
  Receipt Date: 20100705
  Transmission Date: 20110219
  Serious: Yes (Death)
  Sender: FDA-Public Use
  Company Number: GB-SANOFI-AVENTIS-2010SA039490

PATIENT
  Age: 60 Year
  Sex: Female

DRUGS (11)
  1. DOCETAXEL [Suspect]
     Indication: BREAST CANCER
     Route: 041
     Dates: start: 20100614, end: 20100614
  2. TRASTUZUMAB [Suspect]
     Indication: BREAST CANCER
     Route: 042
     Dates: start: 20100614
  3. CYCLOPHOSPHAMIDE [Suspect]
     Indication: BREAST CANCER
     Route: 042
     Dates: start: 20100614
  4. ONDANSETRON [Concomitant]
     Dates: start: 20100614
  5. DEXAMETHASONE [Concomitant]
     Dates: start: 20100614
  6. GRANULOCYTE COLONY STIMULATING FACTOR [Concomitant]
     Route: 058
     Dates: start: 20100524
  7. FUROSEMIDE [Concomitant]
  8. LOPERAMIDE [Concomitant]
  9. TRAMADOL [Concomitant]
  10. OXYCONTIN [Concomitant]
  11. ORAMORPH SR [Concomitant]

REACTIONS (1)
  - SUDDEN DEATH [None]
